FAERS Safety Report 13536139 (Version 2)
Quarter: 2017Q2

REPORT INFORMATION
  Report Type: Report from Study
  Country: US (occurrence: US)
  Receive Date: 20170511
  Receipt Date: 20170512
  Transmission Date: 20170830
  Serious: Yes (Hospitalization)
  Sender: FDA-Public Use
  Company Number: US-BAYER-2017-083162

PATIENT
  Age: 62 Year
  Sex: Male
  Weight: 61.22 kg

DRUGS (12)
  1. VITAMIN D2 [Concomitant]
     Active Substance: ERGOCALCIFEROL
  2. PROCHLORPERAZINE. [Concomitant]
     Active Substance: PROCHLORPERAZINE
  3. OXYCODONE HYDROCHLORIDE. [Concomitant]
     Active Substance: OXYCODONE HYDROCHLORIDE
  4. OSELTAMIVIR PHOSPHATE. [Concomitant]
     Active Substance: OSELTAMIVIR PHOSPHATE
  5. ALLOPURINOL. [Concomitant]
     Active Substance: ALLOPURINOL
  6. BACTRIM [Concomitant]
     Active Substance: SULFAMETHOXAZOLE\TRIMETHOPRIM
  7. TACROLIMUS. [Concomitant]
     Active Substance: TACROLIMUS
  8. ACYCLOVIR [ACICLOVIR] [Concomitant]
     Active Substance: ACYCLOVIR
  9. TESTOSTERONE. [Concomitant]
     Active Substance: TESTOSTERONE
  10. VITAMIN D3 [Concomitant]
     Active Substance: CHOLECALCIFEROL
  11. NEXAVAR [Suspect]
     Active Substance: SORAFENIB
     Indication: ACUTE MYELOID LEUKAEMIA
     Dosage: 400 MG, BID
     Route: 048
     Dates: start: 201704
  12. ZOLPIDEM [Concomitant]
     Active Substance: ZOLPIDEM\ZOLPIDEM TARTRATE

REACTIONS (9)
  - White blood cell count decreased [Unknown]
  - Hospitalisation [None]
  - Product use in unapproved indication [None]
  - Stomatitis [Unknown]
  - Alopecia [Unknown]
  - Anaemia [Unknown]
  - Diarrhoea [Unknown]
  - Platelet count decreased [Unknown]
  - Off label use [None]
